FAERS Safety Report 8478322-7 (Version None)
Quarter: 2012Q2

REPORT INFORMATION
  Report Type: 
  Country: None (occurrence: None)
  Receive Date: 20120629
  Receipt Date: 20120620
  Transmission Date: 20120825
  Serious: Yes (Other)
  Sender: FDA-Public Use
  Company Number: IL-JNJFOC-20120607590

PATIENT
  Age: 26 Year
  Sex: Male

DRUGS (1)
  1. REMICADE [Suspect]
     Indication: CROHN'S DISEASE
     Dosage: THIRD INFUSION
     Route: 042

REACTIONS (4)
  - OCULAR HYPERAEMIA [None]
  - ASPHYXIA [None]
  - ERYTHEMA [None]
  - INFUSION RELATED REACTION [None]
